FAERS Safety Report 13741329 (Version 2)
Quarter: 2017Q4

REPORT INFORMATION
  Report Type: Spontaneous
  Country: US (occurrence: US)
  Receive Date: 20170711
  Receipt Date: 20171023
  Transmission Date: 20180320
  Serious: Yes (Other)
  Sender: FDA-Public Use
  Company Number: US-PFIZER INC-2017294595

PATIENT
  Sex: Female

DRUGS (1)
  1. PREMARIN [Suspect]
     Active Substance: ESTROGENS, CONJUGATED
     Dosage: UNK
     Dates: start: 1971, end: 1973

REACTIONS (9)
  - Food allergy [Unknown]
  - Skin disorder [Unknown]
  - Sinusitis [Unknown]
  - Onychomadesis [Unknown]
  - Choking [Unknown]
  - Paralysis [Unknown]
  - Hypersensitivity [Unknown]
  - Condition aggravated [Unknown]
  - Hyperglycaemia [Unknown]
